FAERS Safety Report 10629183 (Version 1)
Quarter: 2014Q4

REPORT INFORMATION
  Report Type: Spontaneous
  Country: US (occurrence: US)
  Receive Date: 20141205
  Receipt Date: 20141205
  Transmission Date: 20150529
  Serious: No
  Sender: FDA-Public Use
  Company Number: US-BRISTOL-MYERS SQUIBB COMPANY-21364252

PATIENT
  Age: 49 Year
  Sex: Female
  Weight: 88.89 kg

DRUGS (1)
  1. BYETTA [Suspect]
     Active Substance: EXENATIDE
     Indication: TYPE 2 DIABETES MELLITUS
     Dosage: STARTED 6 YEARS AGO + STOPPED 3 YEARS AGO?RESTART AT APR2014

REACTIONS (5)
  - Blood glucose decreased [Unknown]
  - Product quality issue [Unknown]
  - Appetite disorder [Unknown]
  - Weight decreased [Unknown]
  - Blood glucose increased [Unknown]
